FAERS Safety Report 8303523-8 (Version None)
Quarter: 2012Q2

REPORT INFORMATION
  Report Type: 
  Country: None (occurrence: None)
  Receive Date: 20120418
  Receipt Date: 20120403
  Transmission Date: 20120825
  Serious: Yes (Death)
  Sender: FDA-Public Use
  Company Number: DSA_55783_2012

PATIENT
  Age: 52 Year
  Sex: Male

DRUGS (12)
  1. DIAZEPAM [Suspect]
     Indication: COMA HEPATIC
     Dosage: (DF)
  2. MANNITOL [Concomitant]
  3. OXYGEN [Concomitant]
  4. LASIX [Suspect]
     Indication: COMA HEPATIC
     Dosage: (DF ORAL)
     Route: 048
  5. METRONIDAZOLE [Suspect]
     Indication: COMA HEPATIC
     Dosage: (DF)
  6. LACTULOSE [Concomitant]
  7. REFLIN [Concomitant]
  8. QUAMATEL [Concomitant]
  9. AMINOPHYLLINE [Concomitant]
  10. DEXAMETHASONE [Concomitant]
  11. HEPATIL [Concomitant]
  12. INFUSOTHERAPY (ALL OTHER THERAPEUTIC PRODUCTS) [Concomitant]

REACTIONS (1)
  - DRUG INEFFECTIVE [None]
